FAERS Safety Report 13798481 (Version 4)
Quarter: 2024Q3

REPORT INFORMATION
  Report Type: Spontaneous
  Country: NL (occurrence: NL)
  Receive Date: 20170727
  Receipt Date: 20240726
  Transmission Date: 20241017
  Serious: Yes (Other)
  Sender: AUROBINDO
  Company Number: NL-AUROBINDO-AUR-APL-2013-09509

PATIENT
  Age: 36 Year
  Sex: Male

DRUGS (15)
  1. QUETIAPINE [Suspect]
     Active Substance: QUETIAPINE
     Indication: Psychotic disorder
     Dosage: 300 MG,TWO TIMES A DAY,
     Route: 065
  2. QUETIAPINE [Suspect]
     Active Substance: QUETIAPINE
     Indication: Suicidal behaviour
  3. QUETIAPINE [Suspect]
     Active Substance: QUETIAPINE
     Indication: Depression
  4. VENLAFAXINE [Concomitant]
     Active Substance: VENLAFAXINE HYDROCHLORIDE
     Indication: Suicidal behaviour
     Dosage: 225 MG,ONCE A DAY,
     Route: 065
  5. VENLAFAXINE [Concomitant]
     Active Substance: VENLAFAXINE HYDROCHLORIDE
     Indication: Psychotic disorder
  6. VENLAFAXINE [Concomitant]
     Active Substance: VENLAFAXINE HYDROCHLORIDE
     Indication: Depression
  7. PROMETHAZINE [Concomitant]
     Active Substance: PROMETHAZINE HYDROCHLORIDE
     Indication: Depression
     Dosage: 25 MG,ONCE A DAY
     Route: 065
  8. PROMETHAZINE [Concomitant]
     Active Substance: PROMETHAZINE HYDROCHLORIDE
     Indication: Psychotic disorder
  9. PROMETHAZINE [Concomitant]
     Active Substance: PROMETHAZINE HYDROCHLORIDE
     Indication: Suicidal behaviour
  10. LORAZEPAM [Concomitant]
     Active Substance: LORAZEPAM
     Indication: Suicidal behaviour
     Dosage: 1 MILLIGRAM, ONCE A DAY
     Route: 065
  11. LORAZEPAM [Concomitant]
     Active Substance: LORAZEPAM
     Indication: Psychotic disorder
  12. LORAZEPAM [Concomitant]
     Active Substance: LORAZEPAM
     Indication: Depression
  13. TEMAZEPAM [Concomitant]
     Active Substance: TEMAZEPAM
     Indication: Depression
     Dosage: 20 MG,ONCE A DAY,QD
     Route: 065
  14. TEMAZEPAM [Concomitant]
     Active Substance: TEMAZEPAM
     Indication: Psychotic disorder
  15. TEMAZEPAM [Concomitant]
     Active Substance: TEMAZEPAM
     Indication: Suicidal behaviour

REACTIONS (8)
  - Adrenal insufficiency [Recovered/Resolved]
  - Secondary adrenocortical insufficiency [Recovered/Resolved]
  - Hypothyroidism [Recovered/Resolved]
  - Cortisol decreased [Recovered/Resolved]
  - Feeling cold [Recovered/Resolved]
  - Weight increased [Recovered/Resolved]
  - Asthenia [Recovered/Resolved]
  - Fatigue [Recovered/Resolved]
